FAERS Safety Report 22521207 (Version 3)
Quarter: 2023Q2

REPORT INFORMATION
  Report Type: Spontaneous
  Country: JP (occurrence: None)
  Receive Date: 20230605
  Receipt Date: 20230621
  Transmission Date: 20230722
  Serious: Yes (Life-Threatening, Hospitalization, Other)
  Sender: FDA-Public Use
  Company Number: 2023A042825

PATIENT
  Age: 77 Year
  Sex: Male

DRUGS (9)
  1. IMFINZI [Suspect]
     Active Substance: DURVALUMAB
     Indication: Non-small cell lung cancer
     Route: 041
     Dates: start: 20221202, end: 20230119
  2. OLODATEROL HYDROCHLORIDE\TIOTROPIUM BROMIDE MONOHYDRATE [Concomitant]
     Active Substance: OLODATEROL HYDROCHLORIDE\TIOTROPIUM BROMIDE MONOHYDRATE
     Dates: start: 20221107
  3. CALONAL [Concomitant]
     Active Substance: ACETAMINOPHEN
     Route: 048
     Dates: start: 20221107
  4. NORVASC [Concomitant]
     Active Substance: AMLODIPINE BESYLATE
     Route: 048
     Dates: start: 20221107
  5. DEPAS [Concomitant]
     Dosage: 0.5MG UNKNOWN
     Route: 048
  6. LATANOPROST [Concomitant]
     Active Substance: LATANOPROST
     Route: 047
  7. PIRENOXINE [Concomitant]
     Active Substance: PIRENOXINE
     Dates: start: 20221107
  8. MEROPENEM [Concomitant]
     Active Substance: MEROPENEM
     Dates: start: 20230131, end: 20230206
  9. CEFTRIAXONE [Concomitant]
     Active Substance: CEFTRIAXONE
     Route: 042
     Dates: start: 20230207, end: 20230214

REACTIONS (5)
  - Drug-induced liver injury [Recovered/Resolved]
  - Pneumonitis [Recovering/Resolving]
  - COVID-19 [Recovered/Resolved]
  - Hypothyroidism [Unknown]
  - Pneumonia bacterial [Recovered/Resolved]

NARRATIVE: CASE EVENT DATE: 20230105
